FAERS Safety Report 9772886 (Version 1)
Quarter: 2013Q4

REPORT INFORMATION
  Report Type: Spontaneous
  Country: BR (occurrence: BR)
  Receive Date: 20131219
  Receipt Date: 20131219
  Transmission Date: 20140711
  Serious: Yes (Death)
  Sender: FDA-Public Use
  Company Number: BR-ELI_LILLY_AND_COMPANY-BR201312005032

PATIENT
  Age: 86 Year
  Sex: Female

DRUGS (1)
  1. EFFIENT [Suspect]
     Indication: ANTIPLATELET THERAPY
     Dosage: 5 MG, QD
     Route: 048
     Dates: start: 20130523

REACTIONS (4)
  - Oedema [Fatal]
  - Myocardial infarction [Fatal]
  - Arteriosclerosis [Fatal]
  - Dyspnoea [Fatal]
